FAERS Safety Report 10715078 (Version 1)
Quarter: 2015Q1

REPORT INFORMATION
  Report Type: Spontaneous
  Country: CH (occurrence: CH)
  Receive Date: 20150115
  Receipt Date: 20150115
  Transmission Date: 20150721
  Serious: Yes (Hospitalization, Other)
  Sender: FDA-Public Use
  Company Number: CH-009507513-1501CHE002413

PATIENT
  Age: 58 Year
  Sex: Female

DRUGS (10)
  1. CHLORPROTHIXENE [Suspect]
     Active Substance: CHLORPROTHIXENE
     Dosage: UNK
     Route: 048
     Dates: start: 20140913, end: 20140913
  2. LORAZEPAM. [Suspect]
     Active Substance: LORAZEPAM
     Dosage: UNK
     Route: 048
     Dates: start: 20140913, end: 20140913
  3. CETYLPYRIDINIUM CHLORIDE. [Suspect]
     Active Substance: CETYLPYRIDINIUM CHLORIDE
     Dosage: UNK
     Route: 048
     Dates: start: 20140913, end: 20140913
  4. VENLAFAXINE HYDROCHLORIDE. [Suspect]
     Active Substance: VENLAFAXINE HYDROCHLORIDE
     Dosage: 1500 MG, ONCE
     Route: 048
     Dates: start: 20140913, end: 20140913
  5. REMERON [Suspect]
     Active Substance: MIRTAZAPINE
     Dosage: 270 MG, ONCE
     Route: 048
     Dates: start: 20140913, end: 20140913
  6. RISPERIDONE. [Suspect]
     Active Substance: RISPERIDONE
     Dosage: UNK
     Route: 048
     Dates: start: 20140913, end: 20140913
  7. ACETAMINOPHEN. [Suspect]
     Active Substance: ACETAMINOPHEN
     Dosage: UNK
     Route: 048
     Dates: start: 20140913, end: 20140913
  8. QUETIAPINE FUMARATE. [Suspect]
     Active Substance: QUETIAPINE FUMARATE
     Dosage: 2 G, ONCE
     Route: 048
     Dates: start: 20140913, end: 20140913
  9. ASCORBIC ACID. [Suspect]
     Active Substance: ASCORBIC ACID
     Dosage: UNK
     Dates: start: 20140913, end: 20140913
  10. LYSOZYME CHLORIDE [Suspect]
     Active Substance: LYSOZYME HYDROCHLORIDE
     Dosage: UNK
     Route: 048
     Dates: start: 20140913, end: 20140913

REACTIONS (10)
  - Coma [Unknown]
  - Neutrophilia [Unknown]
  - Blood creatine phosphokinase increased [Unknown]
  - Blood lactate dehydrogenase increased [Unknown]
  - Suicide attempt [None]
  - Lymphopenia [Unknown]
  - Intentional overdose [Unknown]
  - Intentional overdose [None]
  - Myoglobin blood increased [Unknown]
  - Toxicity to various agents [None]

NARRATIVE: CASE EVENT DATE: 20140913
